FAERS Safety Report 5166570-3 (Version None)
Quarter: 2006Q4

REPORT INFORMATION
  Report Type: 
  Country: None (occurrence: None)
  Receive Date: 20061130
  Receipt Date: 20061130
  Transmission Date: 20070319
  Serious: No
  Sender: FDA-Public Use
  Company Number: None

PATIENT
  Age: 26 Year
  Sex: Female

DRUGS (1)
  1. MYCOPHENOLATE 1000MG [Suspect]
     Indication: LUPUS NEPHRITIS
     Dosage: 1000MG BID PO
     Route: 048
     Dates: start: 20060622, end: 20060801

REACTIONS (1)
  - OEDEMA PERIPHERAL [None]
